FAERS Safety Report 12055838 (Version 1)
Quarter: 2016Q1

REPORT INFORMATION
  Report Type: Report from Study
  Country: BR (occurrence: BR)
  Receive Date: 20160209
  Receipt Date: 20160209
  Transmission Date: 20160526
  Serious: Yes (Death)
  Sender: FDA-Public Use
  Company Number: PHHY2015BR021042

PATIENT
  Sex: Female
  Weight: 64 kg

DRUGS (1)
  1. SANDOSTATIN LAR DEPOT [Suspect]
     Active Substance: OCTREOTIDE ACETATE
     Indication: NEUROENDOCRINE TUMOUR
     Dosage: 1 DF, QMO
     Route: 065

REACTIONS (8)
  - Catarrh [Recovering/Resolving]
  - Chronic sinusitis [Not Recovered/Not Resolved]
  - Cough [Recovering/Resolving]
  - Hyperhidrosis [Recovering/Resolving]
  - Death [Fatal]
  - Bronchial disorder [Recovering/Resolving]
  - Bone marrow disorder [Recovering/Resolving]
  - Malaise [Recovering/Resolving]
